FAERS Safety Report 11106536 (Version 1)
Quarter: 2015Q2

REPORT INFORMATION
  Report Type: Spontaneous
  Country: IR (occurrence: None)
  Receive Date: 20150508
  Receipt Date: 20150508
  Transmission Date: 20150821
  Serious: Yes (Life-Threatening, Hospitalization)
  Sender: FDA-Public Use
  Company Number: 2015COR00092

PATIENT

DRUGS (2)
  1. CITALOPRAM [Suspect]
     Active Substance: CITALOPRAM HYDROBROMIDE
     Indication: MAJOR DEPRESSION
     Dosage: 10 MG, 1X/DAY
  2. ASPIRIN. [Suspect]
     Active Substance: ASPIRIN
     Indication: MAJOR DEPRESSION
     Dosage: 160 MG, 1X/DAY

REACTIONS (3)
  - Suicidal behaviour [None]
  - Anxiety [None]
  - Drug interaction [None]
